FAERS Safety Report 9772586 (Version 1)
Quarter: 2013Q4

REPORT INFORMATION
  Report Type: Spontaneous
  Country: FR (occurrence: FR)
  Receive Date: 20131219
  Receipt Date: 20131219
  Transmission Date: 20140711
  Serious: Yes (Other)
  Sender: FDA-Public Use
  Company Number: FR-UCBSA-106296

PATIENT
  Sex: 0

DRUGS (1)
  1. CIMZIA [Suspect]
     Dosage: UNKNOWN DOSE

REACTIONS (1)
  - Deep vein thrombosis [Unknown]
